FAERS Safety Report 17017672 (Version 1)
Quarter: 2019Q4

REPORT INFORMATION
  Report Type: Spontaneous
  Country: US (occurrence: US)
  Receive Date: 20191111
  Receipt Date: 20191111
  Transmission Date: 20200122
  Serious: No
  Sender: FDA-Public Use
  Company Number: US-INCYTE CORPORATION-2019IN010945

PATIENT

DRUGS (1)
  1. JAKAFI [Suspect]
     Active Substance: RUXOLITINIB
     Dosage: 2.5 MILLIGRAM, BID (1/2 OF 5MG TABLET)
     Route: 048
     Dates: start: 20190710

REACTIONS (2)
  - Incorrect dose administered [Unknown]
  - Fatigue [Unknown]
